FAERS Safety Report 22305560 (Version 2)
Quarter: 2023Q2

REPORT INFORMATION
  Report Type: Report from Study
  Country: DK (occurrence: DK)
  Receive Date: 20230510
  Receipt Date: 20230517
  Transmission Date: 20230721
  Serious: Yes (Hospitalization, Other)
  Sender: FDA-Public Use
  Company Number: DK-KARYOPHARM-2023KPT001227

PATIENT
  Age: 84 Year
  Sex: Male

DRUGS (21)
  1. SELINEXOR [Suspect]
     Active Substance: SELINEXOR
     Indication: Product used for unknown indication
     Dosage: 40 MG, WEEKLY ON DAY 1, 8, 15, AND 22 OF A 28 DAY CYCLE
     Route: 048
     Dates: start: 20230403
  2. LENALIDOMIDE [Suspect]
     Active Substance: LENALIDOMIDE
     Indication: Product used for unknown indication
  3. SODIUM PICOSULFATE [Concomitant]
     Active Substance: SODIUM PICOSULFATE
     Indication: Constipation
     Dosage: 15 DROPS MAXIMUM 1 TIME DAILY, TO BE TAKEN IN THE EVENING
     Route: 048
     Dates: start: 20230315
  4. GANGIDEN [Concomitant]
     Indication: Constipation
     Dosage: 1 SACHET MAXIMUM 3 TIMES DAILY
     Route: 048
     Dates: start: 20230411
  5. MORPHINE SULFATE [Concomitant]
     Active Substance: MORPHINE SULFATE
     Indication: Pain
     Dosage: 1 TABLET MAXIMUM 4 TIMES DAILY
     Dates: start: 20230420
  6. MORPHINE [Concomitant]
     Active Substance: MORPHINE
     Indication: Pain
     Dosage: 1 TABLET MAXIMUM 6 TIMES DAILY
     Dates: start: 20230208, end: 20230420
  7. ACETAMINOPHEN [Concomitant]
     Active Substance: ACETAMINOPHEN
     Indication: Pain
     Dosage: 2 TABLETS MAXIMUM 4 TIMES DAILY
     Dates: start: 20230424
  8. TAMSULOSIN [Concomitant]
     Active Substance: TAMSULOSIN
     Indication: Urinary tract disorder
     Dosage: 1 CAPSULE 1 TIME DAILY
     Dates: start: 20230506
  9. PREGABALIN [Concomitant]
     Active Substance: PREGABALIN
     Indication: Pain
     Dosage: 2 CAPSULES 2 TIMES DAILY
     Dates: start: 20230310
  10. NIZORAL [Concomitant]
     Active Substance: KETOCONAZOLE
     Indication: Dandruff
     Dosage: 1 TIME DAILY FOR 7 DAYS, RINSE AFTER 3-5 MINUTES, THEREAFTER 2 TIMES WEEKLY
     Dates: start: 20220916
  11. MAGNESIUM HYDROXIDE [Concomitant]
     Active Substance: MAGNESIUM HYDROXIDE
     Indication: Constipation
     Dosage: 2 TABLETS IN MORNING AND 2 TABLETS AT NIGHT
     Dates: start: 20230209
  12. UNIKALK FORTE [Concomitant]
     Indication: Mineral supplementation
     Dosage: 1 TABLET AT NOON AND 1 TABLET IN EVENING
     Dates: start: 20230502
  13. UNIKALK FORTE [Concomitant]
     Indication: Vitamin supplementation
  14. FRAGMIN [Concomitant]
     Active Substance: DALTEPARIN SODIUM
     Indication: Anticoagulant therapy
     Dosage: 15,000 IU 08:00 PM, 15,000 IU 08:00 PM
     Dates: start: 20230430
  15. ACYCLOVIR [Concomitant]
     Active Substance: ACYCLOVIR
     Indication: Infection
     Dosage: 1 TABLET 08:00 AM, 1 TABLET AT NOON, 1 TABLET 08:00 PM
     Dates: start: 20230428
  16. PRADAXA [Concomitant]
     Active Substance: DABIGATRAN ETEXILATE MESYLATE
     Indication: Thrombosis prophylaxis
     Dosage: 1 CAPSULE 2 TIMES DAILY
     Dates: end: 20230403
  17. DIGOXIN [Concomitant]
     Active Substance: DIGOXIN
     Indication: Cardiac disorder
     Dosage: 1 TABLET 1 TIME DAILY
     Dates: start: 20140509
  18. VERAPAMIL [Concomitant]
     Active Substance: VERAPAMIL HYDROCHLORIDE
     Indication: Heart rate irregular
     Dosage: 2 TABLETS 1 TIME DAILY
     Dates: start: 20141119
  19. ZARATOR [ATORVASTATIN] [Concomitant]
     Indication: Blood cholesterol increased
     Dosage: 1 TABLET 1 TIME DAILY
     Dates: start: 20150601
  20. HYDROCORTISONE\MICONAZOLE NITRATE [Concomitant]
     Active Substance: HYDROCORTISONE\MICONAZOLE NITRATE
     Indication: Eczema infected
     Dosage: 20+10 MG/G, 1 APPLICATION 2 TIMES DAILY
     Route: 061
     Dates: start: 20220916
  21. ELOCON [Concomitant]
     Active Substance: MOMETASONE FUROATE
     Indication: Eczema
     Dosage: 1 APPLICATION 1 TIME DAILY
     Route: 061
     Dates: start: 20210915

REACTIONS (3)
  - Cerebral infarction [Recovered/Resolved]
  - Cerebral ischaemia [Recovered/Resolved]
  - Atrial fibrillation [Unknown]

NARRATIVE: CASE EVENT DATE: 20230429
